FAERS Safety Report 6361436-5 (Version None)
Quarter: 2009Q3

REPORT INFORMATION
  Report Type: 
  Country: None (occurrence: None)
  Receive Date: 20090918
  Receipt Date: 20090910
  Transmission Date: 20100115
  Serious: Yes (Hospitalization)
  Sender: FDA-Public Use
  Company Number: US-JNJFOC-20090904264

PATIENT
  Age: 10 Year
  Sex: Male

DRUGS (2)
  1. CHILDREN'S MOTRIN [Suspect]
  2. CHILDREN'S MOTRIN [Suspect]
     Indication: DRUG USE FOR UNKNOWN INDICATION

REACTIONS (1)
  - STEVENS-JOHNSON SYNDROME [None]
